FAERS Safety Report 10721587 (Version 4)
Quarter: 2015Q3

REPORT INFORMATION
  Report Type: Report from Study
  Country: US (occurrence: US)
  Receive Date: 20150119
  Receipt Date: 20150819
  Transmission Date: 20151125
  Serious: No
  Sender: FDA-Public Use
  Company Number: US-GILEAD-2015-0132275

PATIENT
  Age: 48 Year
  Sex: Female
  Weight: 100.68 kg

DRUGS (4)
  1. TYVASO [Suspect]
     Active Substance: TREPROSTINIL
     Indication: PULMONARY ARTERIAL HYPERTENSION
     Dosage: UNK
     Route: 055
     Dates: start: 20140721
  2. OXYGEN. [Concomitant]
     Active Substance: OXYGEN
  3. AMBRISENTAN [Suspect]
     Active Substance: AMBRISENTAN
     Indication: PRODUCT USED FOR UNKNOWN INDICATION
     Dosage: 5 MG, QD
     Route: 065
     Dates: start: 20141218
  4. CIALIS [Concomitant]
     Active Substance: TADALAFIL

REACTIONS (12)
  - Malaise [Unknown]
  - Fatigue [Recovered/Resolved]
  - Swelling [Unknown]
  - Oedema [Unknown]
  - Fluid retention [Unknown]
  - Myalgia [Recovered/Resolved]
  - Oedema [Recovered/Resolved]
  - Chest discomfort [Unknown]
  - Dizziness [Unknown]
  - Abdominal distension [Unknown]
  - Palpitations [Unknown]
  - Dyspnoea [Unknown]
